FAERS Safety Report 7560589-0 (Version None)
Quarter: 2011Q2

REPORT INFORMATION
  Report Type: 
  Country: None (occurrence: None)
  Receive Date: 20110621
  Receipt Date: 20100716
  Transmission Date: 20111010
  Serious: No
  Sender: FDA-Public Use
  Company Number: US-ASTRAZENECA-2010SE33393

PATIENT
  Sex: Female

DRUGS (1)
  1. ENTOCORT EC [Suspect]
     Indication: COLITIS COLLAGENOUS
     Route: 048

REACTIONS (3)
  - BEDRIDDEN [None]
  - WEIGHT DECREASED [None]
  - DRUG DOSE OMISSION [None]
